FAERS Safety Report 5340925-6 (Version None)
Quarter: 2007Q2

REPORT INFORMATION
  Report Type: 
  Country: None (occurrence: None)
  Receive Date: 20070405
  Receipt Date: 20061102
  Transmission Date: 20071010
  Serious: No
  Sender: FDA-Public Use
  Company Number: US200605004837

PATIENT
  Age: 51 Year
  Sex: Male

DRUGS (3)
  1. CYMBALTA [Suspect]
     Indication: NERVOUSNESS
     Dosage: 30 MG, EACH MORNING
     Dates: start: 20060516
  2. DIOVAN [Concomitant]
  3. ALPRAZOLAM [Concomitant]

REACTIONS (6)
  - DECREASED APPETITE [None]
  - DRY MOUTH [None]
  - FLUSHING [None]
  - NAUSEA [None]
  - NERVOUSNESS [None]
  - SEXUAL DYSFUNCTION [None]
